FAERS Safety Report 5204988-0 (Version None)
Quarter: 2007Q1

REPORT INFORMATION
  Report Type: 
  Country: None (occurrence: None)
  Receive Date: 20070110
  Receipt Date: 20060925
  Transmission Date: 20070707
  Serious: No
  Sender: FDA-Public Use
  Company Number: US-BRISTOL-MYERS SQUIBB COMPANY-13520861

PATIENT
  Age: 22 Year
  Sex: Male
  Weight: 82 kg

DRUGS (3)
  1. ABILIFY [Suspect]
     Indication: SCHIZOPHRENIA, PARANOID TYPE
     Dosage: ARIPIRAZOLE DAILY ORAL DOSAGES CHANGED THREE TIMES.
  2. LITHIUM CARBONATE [Concomitant]
  3. EFFEXOR [Concomitant]

REACTIONS (4)
  - DIARRHOEA [None]
  - FATIGUE [None]
  - TREMOR [None]
  - VOMITING [None]
